FAERS Safety Report 19141179 (Version 1)
Quarter: 2021Q2

REPORT INFORMATION
  Report Type: Spontaneous
  Country: US (occurrence: US)
  Receive Date: 20210415
  Receipt Date: 20210415
  Transmission Date: 20210717
  Serious: No
  Sender: FDA-Public Use
  Company Number: US-SA-2021SA114502

PATIENT
  Age: 70 Year
  Sex: Female

DRUGS (1)
  1. LANTUS SOLOSTAR [Suspect]
     Active Substance: INSULIN GLARGINE
     Indication: TYPE 2 DIABETES MELLITUS
     Dosage: 26 UNITS IN THE MORNING (AM) AND 45 UNITS IN THE AFTERNOON OR EVENING (PM)

REACTIONS (3)
  - Inappropriate schedule of product administration [Unknown]
  - Device operational issue [Unknown]
  - Drug dose omission by device [Unknown]
